FAERS Safety Report 9406488 (Version 2)
Quarter: 2013Q3

REPORT INFORMATION
  Report Type: Spontaneous
  Country: US (occurrence: US)
  Receive Date: 20130718
  Receipt Date: 20130909
  Transmission Date: 20140515
  Serious: Yes (Other)
  Sender: FDA-Public Use
  Company Number: US-SP-2013-07719

PATIENT
  Age: 37 Year
  Sex: Female

DRUGS (4)
  1. IMOVAX RABIES [Suspect]
     Indication: IMMUNISATION
     Route: 030
     Dates: start: 20130707, end: 20130707
  2. IMOGAM RABIES-HT [Suspect]
     Indication: IMMUNISATION
     Route: 030
     Dates: start: 20130707, end: 20130707
  3. CELEXA (ANTIDEPRESSANT) [Concomitant]
     Indication: DEPRESSION
  4. TRAMADOL [Concomitant]
     Indication: PAIN

REACTIONS (6)
  - Confusional state [Unknown]
  - Hallucination, auditory [Unknown]
  - Disturbance in attention [Unknown]
  - Pain [Unknown]
  - Nausea [Unknown]
  - Vomiting [Unknown]
